FAERS Safety Report 4756898-0 (Version None)
Quarter: 2005Q3

REPORT INFORMATION
  Report Type: 
  Country: None (occurrence: None)
  Receive Date: 20050830
  Receipt Date: 20050715
  Transmission Date: 20060218
  Serious: No
  Sender: FDA-Public Use
  Company Number: US-GLAXOSMITHKLINE-A0566557A

PATIENT
  Sex: Male

DRUGS (1)
  1. AVODART [Suspect]
     Route: 048

REACTIONS (1)
  - BLOOD POTASSIUM INCREASED [None]
